FAERS Safety Report 8662557 (Version 2)
Quarter: 2012Q4

REPORT INFORMATION
  Report Type: 
  Country: US (occurrence: US)
  Receive Date: 20120712
  Receipt Date: 20121115
  Transmission Date: 20130627
  Serious: Yes (Hospitalization)
  Sender: FDA-Public Use
  Company Number: US-PFIZER INC-2012158491

PATIENT
  Age: 62 Year
  Sex: Female
  Weight: 90.7 kg

DRUGS (17)
  1. IBUPROFEN [Suspect]
     Indication: OSTEOARTHRITIS
     Dosage: 800 mg, 3x/day
     Route: 048
     Dates: start: 20111108, end: 20120626
  2. IBUPROFEN [Suspect]
     Indication: RA
  3. NEXIUM [Concomitant]
     Indication: PROPHYLAXIS
     Dosage: 40 mg, 1x/day
     Route: 048
     Dates: start: 20111108, end: 20120626
  4. METOPROLOL SUCCINATE [Concomitant]
     Indication: HYPERTENSION
     Dosage: 25 mg, 1x/day
     Route: 048
     Dates: start: 20100820
  5. CLOPIDOGREL BISULFATE [Concomitant]
     Indication: CORONARY ARTERY DISEASE
     Dosage: 75 mg, 1x/day
     Route: 048
     Dates: start: 20101012
  6. ACETYLSALICYLIC ACID [Concomitant]
     Indication: PROPHYLAXIS
     Dosage: 81 mg, 1x/day
     Route: 048
     Dates: start: 20120109
  7. FUROSEMIDE [Concomitant]
     Indication: EDEMA
     Dosage: 20 mg, 2 tabs Q AM (morning)
     Route: 048
     Dates: start: 20111129
  8. KLOR-CON [Concomitant]
     Indication: SUPPLEMENTATION THERAPY
     Dosage: 20 mEq, 1 tab q day
     Route: 048
     Dates: start: 20111130
  9. RANOLAZINE [Concomitant]
     Indication: CHEST PRESSURE
     Dosage: 500 mg XR, BID
     Route: 048
     Dates: start: 20110408
  10. NITRO-DUR [Concomitant]
     Indication: CHEST PAIN
     Dosage: 0.4 mg, as needed
     Route: 060
     Dates: start: 20110318
  11. ROSUVASTATIN [Concomitant]
     Indication: HYPERCHOLESTEROLEMIA
     Dosage: 20 mg, 1x/day
     Route: 048
     Dates: start: 20100810
  12. MIRAPEX [Concomitant]
     Indication: RESTLESS LEG SYNDROME
     Dosage: 0.25 mg, TID
     Route: 048
     Dates: start: 20110912
  13. BUSPIRONE HYDROCHLORIDE [Concomitant]
     Indication: STRESS
     Dosage: 5 mg, 1x/day
     Route: 048
     Dates: start: 20111129
  14. CITALOPRAM [Concomitant]
     Indication: ANXIETY
     Dosage: 20 mg, 1x/day
     Route: 048
     Dates: start: 20100525
  15. LEVOCETIRIZINE DIHYDROCHLORIDE [Concomitant]
     Indication: SEASONAL ALLERGY
     Dosage: 5 mg, 1x/day
     Route: 048
     Dates: start: 20110323
  16. PHENTERMINE HYDROCHLORIDE [Concomitant]
     Indication: WEIGHT LOSS
     Dosage: 30 mg, 1x/day
     Route: 048
     Dates: start: 20110811
  17. FENOFIBRATE [Concomitant]
     Indication: HYPERCHOLESTEROLEMIA
     Dosage: 145 mg, 1x/day
     Route: 048
     Dates: start: 20111216

REACTIONS (1)
  - Syncope [Recovered/Resolved]
